FAERS Safety Report 18993300 (Version 1)
Quarter: 2021Q1

REPORT INFORMATION
  Report Type: Spontaneous
  Country: NO (occurrence: NO)
  Receive Date: 20210310
  Receipt Date: 20210310
  Transmission Date: 20210420
  Serious: Yes (Congenital Anomaly)
  Sender: FDA-Public Use
  Company Number: NO-BAUSCH-BL-2021-006843

PATIENT
  Sex: Female
  Weight: 2.99 kg

DRUGS (5)
  1. PHENOBARBITONE [Suspect]
     Active Substance: PHENOBARBITAL
     Indication: PRODUCT USED FOR UNKNOWN INDICATION
     Route: 064
  2. ETHOSUXIMIDE. [Suspect]
     Active Substance: ETHOSUXIMIDE
     Dosage: DECREASING AMOUNTS UNTIL SIX AND HALF MONTHS GESTATION
     Route: 064
  3. ETHOSUXIMIDE. [Suspect]
     Active Substance: ETHOSUXIMIDE
     Indication: PRODUCT USED FOR UNKNOWN INDICATION
     Route: 064
  4. VITAMIN K [Suspect]
     Active Substance: PHYTONADIONE
     Indication: PRODUCT USED FOR UNKNOWN INDICATION
     Route: 064
  5. PRIMIDONE. [Suspect]
     Active Substance: PRIMIDONE
     Indication: PRODUCT USED FOR UNKNOWN INDICATION
     Route: 064

REACTIONS (14)
  - Bone development abnormal [Unknown]
  - Congenital oral malformation [Unknown]
  - Prognathism [Unknown]
  - Hypertelorism of orbit [Unknown]
  - Maternal exposure during pregnancy [Unknown]
  - Dysmorphism [Unknown]
  - Poor feeding infant [Unknown]
  - Low set ears [Unknown]
  - Growth retardation [Unknown]
  - Irritability [Unknown]
  - Prominent epicanthal folds [Unknown]
  - Postnatal growth restriction [Unknown]
  - Congenital nose malformation [Unknown]
  - Agitation neonatal [Unknown]

NARRATIVE: CASE EVENT DATE: 1969
